FAERS Safety Report 5835323-2 (Version None)
Quarter: 2008Q3

REPORT INFORMATION
  Report Type: 
  Country: None (occurrence: None)
  Receive Date: 20080804
  Receipt Date: 20080729
  Transmission Date: 20090109
  Serious: Yes (Hospitalization)
  Sender: FDA-Public Use
  Company Number: 2008SP012523

PATIENT
  Age: 46 Year
  Sex: Male

DRUGS (8)
  1. PEG-INTRON [Suspect]
     Indication: HEPATITIS C
     Dosage: 150 MCG; QW; SC
     Route: 058
     Dates: start: 20080418
  2. RIBAVIRIN [Suspect]
     Indication: HEPATITIS C
     Dosage: 1200 MG; QD; PO
     Route: 048
     Dates: start: 20080418
  3. PAIN PILLS [Suspect]
     Indication: DRUG USE FOR UNKNOWN INDICATION
  4. ALCOHOL [Suspect]
     Indication: DRUG USE FOR UNKNOWN INDICATION
  5. TIZANIDIEN (CON.) [Concomitant]
  6. TRAZODONE (CON.) [Concomitant]
  7. TOPAMAX (CON.) [Concomitant]
  8. AMITRIPTYLINE (CON.) [Concomitant]

REACTIONS (8)
  - ALANINE AMINOTRANSFERASE INCREASED [None]
  - ALCOHOL USE [None]
  - ASTHENIA [None]
  - HAEMOGLOBIN DECREASED [None]
  - MALAISE [None]
  - MEMORY IMPAIRMENT [None]
  - PAIN [None]
  - RESPIRATORY ARREST [None]
